FAERS Safety Report 5141888-9 (Version None)
Quarter: 2006Q4

REPORT INFORMATION
  Report Type: 
  Country: None (occurrence: None)
  Receive Date: 20061026
  Receipt Date: 20061023
  Transmission Date: 20070319
  Serious: Yes (Other)
  Sender: FDA-Public Use
  Company Number: GBWYE181210OCT06

PATIENT
  Age: 69 Year
  Sex: Female

DRUGS (14)
  1. EFFEXOR XR [Suspect]
     Indication: ANXIETY
     Dosage: 75MG ONCE DAILY ORAL
     Route: 048
     Dates: start: 20020624, end: 20061012
  2. EFFEXOR XR [Suspect]
     Indication: DEPRESSION
     Dosage: 75MG ONCE DAILY ORAL
     Route: 048
     Dates: start: 20020624, end: 20061012
  3. SALBUTAMOL (SALBUTAMOL) [Concomitant]
  4. ASPIRIN [Concomitant]
  5. SENNA (SENNA) [Concomitant]
  6. LACTULOSE [Concomitant]
  7. RAMIPRIL [Concomitant]
  8. CO-PROXAMOL (DEXTROPROPOXYPHENE HYDROCHLORIDE/PARACETAMOL) [Concomitant]
  9. ZOPICLONE (ZOPICLONE) [Concomitant]
  10. QVAR (BECLOMETASONE DIPROPIONATE) [Concomitant]
  11. SALMETEROL XINAFOATE (SALMETEROL XINAFOATE) [Concomitant]
  12. OMEPRAZOLE [Concomitant]
  13. SIMVASTATIN [Concomitant]
  14. FERROUS GLUCONATE (FERROUS GLUCONATE) [Concomitant]

REACTIONS (4)
  - CEREBROVASCULAR ACCIDENT [None]
  - IRON DEFICIENCY ANAEMIA [None]
  - RESPIRATORY DISORDER [None]
  - SARCOIDOSIS [None]
